FAERS Safety Report 7755489-7 (Version None)
Quarter: 2011Q3

REPORT INFORMATION
  Report Type: 
  Country: None (occurrence: None)
  Receive Date: 20110916
  Receipt Date: 20110912
  Transmission Date: 20111222
  Serious: Yes (Other)
  Sender: FDA-Public Use
  Company Number: JP-PFIZER INC-2011117907

PATIENT
  Age: 80 Year
  Sex: Male
  Weight: 62 kg

DRUGS (17)
  1. SUNITINIB MALATE [Suspect]
     Dosage: 37.5 MG, 1X/DAY, 2WKS ON/2WKS OFF
     Route: 048
  2. AMLODIPINE [Concomitant]
     Indication: HYPERTENSION
     Dosage: 2.5 MG, 1X/DAY
     Route: 048
     Dates: end: 20090823
  3. MAGNESIUM OXIDE [Concomitant]
     Indication: CONSTIPATION
  4. SUNITINIB MALATE [Suspect]
     Dosage: 50 MG, 1X/DAY
     Route: 048
     Dates: start: 20090324, end: 20090409
  5. CASODEX [Concomitant]
     Indication: BENIGN PROSTATIC HYPERPLASIA
  6. ENALAPRIL MALEATE [Concomitant]
     Indication: HYPERTENSION
  7. AMLODIPINE [Concomitant]
     Dosage: 2.5 MG, 1X/DAY
     Dates: start: 20090830
  8. SUNITINIB MALATE [Suspect]
     Indication: RENAL CELL CARCINOMA
     Dosage: 25 MG, 1X/DAY
     Route: 048
     Dates: start: 20090210
  9. AMLODIPINE [Concomitant]
     Dosage: 5 MG, 1X/DAY
     Dates: start: 20090824, end: 20090829
  10. TAMSULOSIN HCL [Concomitant]
     Indication: BENIGN PROSTATIC HYPERPLASIA
  11. FAMOTIDINE [Concomitant]
  12. NATEGLINIDE [Concomitant]
     Indication: DIABETES MELLITUS
  13. ISOSORBIDE DINITRATE [Concomitant]
     Indication: MYOCARDIAL INFARCTION
  14. LEVOTHYROXINE SODIUM [Concomitant]
     Indication: HYPOTHYROIDISM
     Dosage: 1X/DAY
     Dates: start: 20090422
  15. SUNITINIB MALATE [Suspect]
     Dosage: 37.5 MG, 1X/DAY
     Route: 048
     Dates: start: 20090623, end: 20090823
  16. SUNITINIB MALATE [Suspect]
     Dosage: 25 MG, 1X/DAY
     Route: 048
     Dates: start: 20091008, end: 20110208
  17. ASPIRIN [Concomitant]
     Indication: MYOCARDIAL INFARCTION

REACTIONS (1)
  - ANGINA UNSTABLE [None]
